FAERS Safety Report 11203230 (Version 2)
Quarter: 2015Q2

REPORT INFORMATION
  Report Type: Report from Study
  Country: CA (occurrence: CA)
  Receive Date: 20150619
  Receipt Date: 20150623
  Transmission Date: 20150821
  Serious: Yes (Other)
  Sender: FDA-Public Use
  Company Number: CA-JNJFOC-20150614203

PATIENT
  Age: 67 Year
  Sex: Male
  Weight: 92.5 kg

DRUGS (25)
  1. SODIUM BICARBONATE. [Concomitant]
     Active Substance: SODIUM BICARBONATE
     Route: 065
  2. FOLIC ACID. [Concomitant]
     Active Substance: FOLIC ACID
     Route: 065
  3. TECTA [Concomitant]
     Active Substance: PANTOPRAZOLE MAGNESIUM
     Route: 065
  4. VITAMIN D3 [Concomitant]
     Active Substance: CHOLECALCIFEROL
     Route: 065
  5. METAMUCIL [Concomitant]
     Active Substance: PLANTAGO SEED
     Route: 065
  6. CRESTOR [Concomitant]
     Active Substance: ROSUVASTATIN CALCIUM
     Route: 065
  7. HYDRALAZINE [Concomitant]
     Active Substance: HYDRALAZINE HYDROCHLORIDE
     Route: 065
  8. INSULIN [Concomitant]
     Active Substance: INSULIN NOS
     Dosage: NOVAMIX 30- 12 IN AM AND 12 IN PM
     Route: 065
  9. CORTEF [Concomitant]
     Active Substance: HYDROCORTISONE
     Dosage: VIALS
     Route: 065
  10. CALCIUM+VITAMIN D [Concomitant]
     Active Substance: CALCIUM\VITAMIN D
     Route: 065
  11. REMICADE [Suspect]
     Active Substance: INFLIXIMAB
     Indication: CROHN^S DISEASE
     Route: 042
     Dates: start: 20110921
  12. FERROUS FUMERATE [Concomitant]
     Active Substance: FERROUS FUMARATE
     Route: 065
  13. GLUCOSAMINE SULPHATE [Concomitant]
     Active Substance: GLUCOSAMINE
     Route: 065
  14. REPLAVITE [Concomitant]
     Route: 065
  15. SALOFALK [Concomitant]
     Active Substance: MESALAMINE
     Route: 065
  16. OMEGA 3 [Concomitant]
     Active Substance: OMEGA-3 FATTY ACIDS
     Route: 065
  17. REMICADE [Suspect]
     Active Substance: INFLIXIMAB
     Indication: CROHN^S DISEASE
     Route: 042
     Dates: start: 2015
  18. IMODIUM [Concomitant]
     Active Substance: LOPERAMIDE HYDROCHLORIDE
  19. NORVASC [Concomitant]
     Active Substance: AMLODIPINE BESYLATE
     Route: 065
  20. ASPIRIN. [Concomitant]
     Active Substance: ASPIRIN
     Route: 065
  21. ALENDRONATE [Concomitant]
     Active Substance: ALENDRONATE SODIUM
     Route: 065
  22. METOPROLOL [Concomitant]
     Active Substance: METOPROLOL
     Route: 065
  23. EPREX [Concomitant]
     Active Substance: ERYTHROPOIETIN
     Route: 065
  24. SYNTHROID [Concomitant]
     Active Substance: LEVOTHYROXINE SODIUM
     Route: 065
  25. ANDROGEL [Concomitant]
     Active Substance: TESTOSTERONE
     Dosage: 5 GRAMS PACKET ONE EVERY OTHER DAY
     Route: 065

REACTIONS (2)
  - Basal cell carcinoma [Not Recovered/Not Resolved]
  - Infection [Unknown]

NARRATIVE: CASE EVENT DATE: 201506
